FAERS Safety Report 6163862-6 (Version None)
Quarter: 2009Q2

REPORT INFORMATION
  Report Type: 
  Country: None (occurrence: None)
  Receive Date: 20090420
  Receipt Date: 20090409
  Transmission Date: 20091009
  Serious: Yes (Disabling)
  Sender: FDA-Public Use
  Company Number: GXKR2009GB04512

PATIENT
  Age: 58 Year
  Sex: Male
  Weight: 107.7 kg

DRUGS (10)
  1. SIMVASTATIN [Suspect]
     Indication: HYPERLIPIDAEMIA
     Dosage: 40 MG, ORAL
     Route: 048
  2. BYETTA [Suspect]
     Indication: TYPE 2 DIABETES MELLITUS
     Dosage: 10 MG, SUBCUTANEOUS
     Route: 058
     Dates: start: 20080424
  3. AMLODIPINE [Concomitant]
  4. ACETYLSALICYLIC ACID (ACETYLSALICYLIC ACID) [Concomitant]
  5. GABAPENTIN [Concomitant]
  6. IRBESARTAN [Concomitant]
  7. LANTUS [Concomitant]
  8. METFORMIN HCL [Concomitant]
  9. INDAPAMIDE [Concomitant]
  10. PANTOPRAZOLE SODIUM [Concomitant]

REACTIONS (3)
  - PAIN IN EXTREMITY [None]
  - TENDERNESS [None]
  - THROMBOSIS [None]
